FAERS Safety Report 6656543-3 (Version None)
Quarter: 2010Q1

REPORT INFORMATION
  Report Type: 
  Country: None (occurrence: None)
  Receive Date: 20100329
  Receipt Date: 20100324
  Transmission Date: 20100710
  Serious: Yes (Other)
  Sender: FDA-Public Use
  Company Number: PHHY2010RU14973

PATIENT
  Age: 60 Year
  Sex: Male

DRUGS (6)
  1. ACLASTA [Suspect]
     Indication: OSTEOPOROSIS
     Dosage: UNK
     Dates: start: 20100129
  2. INDAP [Concomitant]
     Indication: HYPERTENSION
  3. CAPOTEN [Concomitant]
     Indication: BLOOD PRESSURE INCREASED
  4. INHALATION STEROID [Concomitant]
     Indication: ASTHMA
  5. CALCIUM [Concomitant]
  6. VITAMIN D3 [Concomitant]

REACTIONS (9)
  - BLOOD PRESSURE INCREASED [None]
  - DIARRHOEA [None]
  - FACE OEDEMA [None]
  - INFLUENZA [None]
  - OEDEMA GENITAL [None]
  - OEDEMA PERIPHERAL [None]
  - PYREXIA [None]
  - TUBULOINTERSTITIAL NEPHRITIS [None]
  - VIRAL INFECTION [None]
